FAERS Safety Report 17200444 (Version 3)
Quarter: 2021Q1

REPORT INFORMATION
  Report Type: Spontaneous
  Country: US (occurrence: US)
  Receive Date: 20191226
  Receipt Date: 20210302
  Transmission Date: 20210419
  Serious: Yes (Other)
  Sender: FDA-Public Use
  Company Number: US-ASTRAZENECA-2019SF85089

PATIENT
  Age: 23057 Day
  Sex: Female
  Weight: 72.6 kg

DRUGS (75)
  1. PENICILLIN [Concomitant]
     Active Substance: PENICILLIN
     Indication: INFECTION
     Route: 065
     Dates: start: 201112, end: 201204
  2. DOXYCYCLINE. [Concomitant]
     Active Substance: DOXYCYCLINE
     Indication: INFECTION
     Route: 065
     Dates: start: 201809, end: 201809
  3. ATENOLOL. [Concomitant]
     Active Substance: ATENOLOL
  4. CLONAZEPAM. [Concomitant]
     Active Substance: CLONAZEPAM
  5. SPIRONOLACTONE. [Concomitant]
     Active Substance: SPIRONOLACTONE
  6. PREDNISONE. [Concomitant]
     Active Substance: PREDNISONE
  7. VERAPAMIL [Concomitant]
     Active Substance: VERAPAMIL HYDROCHLORIDE
  8. ONDANSETRON [Concomitant]
     Active Substance: ONDANSETRON
  9. MONTELUKAST [Concomitant]
     Active Substance: MONTELUKAST SODIUM
  10. NEXIUM [Suspect]
     Active Substance: ESOMEPRAZOLE MAGNESIUM
     Indication: GASTROOESOPHAGEAL REFLUX DISEASE
     Route: 048
     Dates: start: 2001, end: 2013
  11. NAPROXEN. [Concomitant]
     Active Substance: NAPROXEN
     Indication: PAIN
     Route: 065
     Dates: start: 201211, end: 201212
  12. KETOROLAC [Concomitant]
     Active Substance: KETOROLAC TROMETHAMINE
     Indication: PAIN
     Route: 065
     Dates: start: 201409, end: 201409
  13. IRBESARTAN. [Concomitant]
     Active Substance: IRBESARTAN
     Indication: BLOOD PRESSURE ABNORMAL
     Route: 065
     Dates: start: 201809, end: 202002
  14. ALLOPURINOL. [Concomitant]
     Active Substance: ALLOPURINOL
     Indication: ACID PEPTIC DISEASE
     Route: 065
     Dates: start: 201809, end: 201911
  15. OXAPROZIN. [Concomitant]
     Active Substance: OXAPROZIN
  16. DICYCLOMINE [Concomitant]
     Active Substance: DICYCLOMINE HYDROCHLORIDE
  17. SUMATRIPTAN. [Concomitant]
     Active Substance: SUMATRIPTAN
  18. MIDAMOR [Concomitant]
     Active Substance: AMILORIDE HYDROCHLORIDE
  19. VERELAN [Concomitant]
     Active Substance: VERAPAMIL HYDROCHLORIDE
  20. OMEPRAZOLE. [Suspect]
     Active Substance: OMEPRAZOLE
     Indication: GASTROOESOPHAGEAL REFLUX DISEASE
     Dosage: GENERIC
     Route: 065
     Dates: start: 2015, end: 2019
  21. PREVACID [Suspect]
     Active Substance: LANSOPRAZOLE
     Indication: GASTROOESOPHAGEAL REFLUX DISEASE
     Route: 065
     Dates: start: 200101, end: 201801
  22. HYDROCHLOROTHIAZIDE. [Concomitant]
     Active Substance: HYDROCHLOROTHIAZIDE
     Indication: BLOOD PRESSURE ABNORMAL
     Route: 065
     Dates: start: 200709, end: 200801
  23. AMITRIPTYLINE [Concomitant]
     Active Substance: AMITRIPTYLINE
     Indication: DEPRESSION
     Route: 065
     Dates: start: 201602, end: 201603
  24. LOSARTAN. [Concomitant]
     Active Substance: LOSARTAN
     Indication: BLOOD PRESSURE ABNORMAL
     Route: 065
     Dates: start: 201405, end: 201809
  25. VITAMIN FOR WOMEN [Concomitant]
     Indication: HYPOVITAMINOSIS
     Route: 065
     Dates: start: 202003
  26. IBUPROFEN. [Concomitant]
     Active Substance: IBUPROFEN
  27. ZOLPIDEM [Concomitant]
     Active Substance: ZOLPIDEM TARTRATE
  28. CLONIDINE. [Concomitant]
     Active Substance: CLONIDINE
  29. ZOSTAVAX [Concomitant]
     Active Substance: VARICELLA-ZOSTER VIRUS STRAIN OKA/MERCK LIVE ANTIGEN
  30. AZITHROMYCIN ANHYDROUS. [Concomitant]
     Active Substance: AZITHROMYCIN ANHYDROUS
     Indication: INFECTION
     Route: 065
     Dates: start: 201808, end: 201809
  31. MELOXICAM. [Concomitant]
     Active Substance: MELOXICAM
     Indication: PAIN
     Route: 065
     Dates: start: 201811, end: 201910
  32. VITAMIN B12 [Concomitant]
     Active Substance: CYANOCOBALAMIN
     Indication: MALNUTRITION
     Route: 065
     Dates: start: 202003
  33. AXID AR [Concomitant]
     Active Substance: NIZATIDINE
     Route: 065
     Dates: start: 2005
  34. ZANTAC [Concomitant]
     Active Substance: RANITIDINE HYDROCHLORIDE
     Route: 065
     Dates: start: 2005, end: 2015
  35. EQ TUSSIN [Concomitant]
  36. ACYCLOVIR. [Concomitant]
     Active Substance: ACYCLOVIR
  37. SUCRALFATE. [Concomitant]
     Active Substance: SUCRALFATE
  38. COLCRYS [Concomitant]
     Active Substance: COLCHICINE
  39. PRILOSEC OTC [Suspect]
     Active Substance: OMEPRAZOLE MAGNESIUM
     Indication: GASTROOESOPHAGEAL REFLUX DISEASE
     Route: 048
     Dates: start: 2003
  40. OMEPRAZOLE. [Suspect]
     Active Substance: OMEPRAZOLE
     Indication: GASTROOESOPHAGEAL REFLUX DISEASE
     Dosage: GENERIC
     Route: 048
     Dates: start: 20191111
  41. PREVACID [Suspect]
     Active Substance: LANSOPRAZOLE
     Indication: GASTROOESOPHAGEAL REFLUX DISEASE
     Route: 065
     Dates: start: 2001, end: 2018
  42. TRAMADOL. [Concomitant]
     Active Substance: TRAMADOL
     Indication: PAIN
     Route: 065
     Dates: start: 200702, end: 200709
  43. PEPTO?BISMOL [Concomitant]
     Active Substance: BISMUTH SUBSALICYLATE
     Route: 065
     Dates: start: 2000, end: 2010
  44. TUMS [Concomitant]
     Active Substance: CALCIUM CARBONATE
     Route: 065
     Dates: start: 2000, end: 2010
  45. LOTEMAX [Concomitant]
     Active Substance: LOTEPREDNOL ETABONATE
  46. CYCLOBENZAPRINE. [Concomitant]
     Active Substance: CYCLOBENZAPRINE
  47. CEPHADYN [Concomitant]
     Active Substance: ACETAMINOPHEN\BUTALBITAL
  48. PROMETHAZINE [Concomitant]
     Active Substance: PROMETHAZINE HYDROCHLORIDE
  49. CETRIZINE [Concomitant]
     Active Substance: CETIRIZINE HYDROCHLORIDE
  50. PREVACID [Suspect]
     Active Substance: LANSOPRAZOLE
     Indication: GASTROOESOPHAGEAL REFLUX DISEASE
     Dosage: GENERIC
     Route: 065
     Dates: end: 201412
  51. DICLOFENAC [Concomitant]
     Active Substance: DICLOFENAC
     Indication: PAIN
     Route: 065
     Dates: start: 200812, end: 200901
  52. AMOXICILLIN. [Concomitant]
     Active Substance: AMOXICILLIN
     Indication: INFECTION
     Route: 065
     Dates: start: 201204, end: 201205
  53. TOBRAMYCIN. [Concomitant]
     Active Substance: TOBRAMYCIN
     Indication: INFECTION
     Route: 065
     Dates: start: 201308, end: 201404
  54. ALPRAZOLAM. [Concomitant]
     Active Substance: ALPRAZOLAM
  55. AMILORIDE [Concomitant]
     Active Substance: AMILORIDE
  56. ANTIVERT [Concomitant]
     Active Substance: MECLIZINE HYDROCHLORIDE
  57. NEXIUM [Suspect]
     Active Substance: ESOMEPRAZOLE MAGNESIUM
     Indication: GASTROOESOPHAGEAL REFLUX DISEASE
     Route: 048
     Dates: start: 200101, end: 201801
  58. PREVACID [Suspect]
     Active Substance: LANSOPRAZOLE
     Indication: GASTROOESOPHAGEAL REFLUX DISEASE
     Route: 065
     Dates: start: 2001, end: 2018
  59. CIPROFLOXACIN. [Concomitant]
     Active Substance: CIPROFLOXACIN
     Indication: INFECTION
     Route: 065
     Dates: start: 201107, end: 201108
  60. ACETAMINOPHEN. [Concomitant]
     Active Substance: ACETAMINOPHEN
     Indication: BACK PAIN
     Route: 065
     Dates: start: 200901
  61. FLUXID [Concomitant]
     Active Substance: FAMOTIDINE
     Route: 065
     Dates: start: 2010
  62. TAGAMET [Concomitant]
     Active Substance: CIMETIDINE
     Route: 065
     Dates: start: 2000, end: 2015
  63. BLEPHAMIDE [Concomitant]
     Active Substance: PREDNISOLONE ACETATE\SULFACETAMIDE SODIUM
  64. METOCLOPRAMIDE. [Concomitant]
     Active Substance: METOCLOPRAMIDE
  65. MECLIZINE [Concomitant]
     Active Substance: MECLIZINE HYDROCHLORIDE
  66. FLEXERIL [Concomitant]
     Active Substance: CYCLOBENZAPRINE HYDROCHLORIDE
  67. PRILOSEC OTC [Suspect]
     Active Substance: OMEPRAZOLE MAGNESIUM
     Indication: GASTROOESOPHAGEAL REFLUX DISEASE
     Route: 048
     Dates: start: 20090105
  68. OMEPRAZOLE. [Suspect]
     Active Substance: OMEPRAZOLE
     Indication: GASTROOESOPHAGEAL REFLUX DISEASE
     Dosage: GENERIC
     Route: 048
     Dates: start: 20150125
  69. PREVACID [Suspect]
     Active Substance: LANSOPRAZOLE
     Indication: GASTROOESOPHAGEAL REFLUX DISEASE
     Route: 065
     Dates: start: 200101, end: 201801
  70. PREVACID [Suspect]
     Active Substance: LANSOPRAZOLE
     Indication: GASTROOESOPHAGEAL REFLUX DISEASE
     Dosage: GENERIC
     Route: 065
     Dates: end: 201412
  71. INDOMETHACIN. [Concomitant]
     Active Substance: INDOMETHACIN
     Indication: PAIN
     Route: 065
     Dates: start: 201910, end: 202001
  72. HYDROXYZINE [Concomitant]
     Active Substance: HYDROXYZINE HYDROCHLORIDE
     Indication: ANXIETY
     Route: 065
     Dates: start: 201708, end: 201906
  73. MAGNESIUM HYDROXIDE. [Concomitant]
     Active Substance: MAGNESIUM HYDROXIDE
     Route: 065
     Dates: start: 2012
  74. PEPCID [Concomitant]
     Active Substance: FAMOTIDINE
     Route: 065
     Dates: start: 2000, end: 2015
  75. VALACYCLOVIR [Concomitant]
     Active Substance: VALACYCLOVIR HYDROCHLORIDE

REACTIONS (5)
  - Chronic kidney disease-mineral and bone disorder [Unknown]
  - Acute kidney injury [Not Recovered/Not Resolved]
  - Nephrogenic anaemia [Unknown]
  - Gastrooesophageal reflux disease [Not Recovered/Not Resolved]
  - Chronic kidney disease [Not Recovered/Not Resolved]

NARRATIVE: CASE EVENT DATE: 20201203
